FAERS Safety Report 15955728 (Version 1)
Quarter: 2019Q1

REPORT INFORMATION
  Report Type: Spontaneous
  Country: US (occurrence: US)
  Receive Date: 20190212
  Receipt Date: 20190212
  Transmission Date: 20190417
  Serious: Yes (Hospitalization, Other)
  Sender: FDA-Public Use
  Company Number: None

PATIENT
  Age: 8 Month
  Sex: Female
  Weight: 7.2 kg

DRUGS (1)
  1. TAMIFLU [Suspect]
     Active Substance: OSELTAMIVIR PHOSPHATE
     Indication: INFLUENZA
     Dates: start: 20190207, end: 20190210

REACTIONS (5)
  - Feeling abnormal [None]
  - Hallucination [None]
  - Confusional state [None]
  - Heart rate increased [None]
  - Seizure [None]

NARRATIVE: CASE EVENT DATE: 20190207
